FAERS Safety Report 14186602 (Version 3)
Quarter: 2018Q2

REPORT INFORMATION
  Report Type: Spontaneous
  Country: US (occurrence: US)
  Receive Date: 20171114
  Receipt Date: 20180508
  Transmission Date: 20180711
  Serious: No
  Sender: FDA-Public Use
  Company Number: US-CELLTRION INC.-2017US012747

PATIENT

DRUGS (2)
  1. INFLECTRA [Suspect]
     Active Substance: INFLIXIMAB-DYYB
     Indication: RHEUMATOID ARTHRITIS
     Dosage: CYCLIC (3 VIALS AT 0, 2, 4, AND THEN EVERY 8 WEEKS)
     Route: 065
  2. INFLECTRA [Suspect]
     Active Substance: INFLIXIMAB-DYYB
     Indication: OSTEOARTHRITIS
     Dosage: CYCLIC (3 VIALS AT 0, 2, 4, AND THEN EVERY 8 WEEKS)
     Route: 065
     Dates: start: 20171002, end: 20171002

REACTIONS (5)
  - Inappropriate schedule of drug administration [Unknown]
  - Drug dose omission [Unknown]
  - Drug prescribing error [Unknown]
  - Alopecia [Unknown]
  - Off label use [Unknown]
